FAERS Safety Report 5971341-1 (Version None)
Quarter: 2008Q4

REPORT INFORMATION
  Report Type: 
  Country: None (occurrence: None)
  Receive Date: 20081128
  Receipt Date: 20081124
  Transmission Date: 20090506
  Serious: Yes (Death)
  Sender: FDA-Public Use
  Company Number: US-PFIZER INC-2008099969

PATIENT
  Sex: Male

DRUGS (4)
  1. ZYVOX [Suspect]
  2. DRUG, UNSPECIFIED [Suspect]
  3. ELAVIL [Concomitant]
  4. DRUG, UNSPECIFIED [Concomitant]

REACTIONS (3)
  - DEATH [None]
  - DRUG INTERACTION [None]
  - GENERAL PHYSICAL HEALTH DETERIORATION [None]
